FAERS Safety Report 8385604-6 (Version None)
Quarter: 2012Q2

REPORT INFORMATION
  Report Type: 
  Country: None (occurrence: None)
  Receive Date: 20120525
  Receipt Date: 20120521
  Transmission Date: 20120825
  Serious: No
  Sender: FDA-Public Use
  Company Number: US-PFIZER INC-2012087219

PATIENT
  Sex: Female
  Weight: 86.168 kg

DRUGS (2)
  1. METOPROLOL [Concomitant]
     Indication: CARDIAC DISORDER
     Dosage: UNK
  2. TOVIAZ [Suspect]
     Indication: POLLAKIURIA
     Dosage: 4 MG, DAILY

REACTIONS (3)
  - INSOMNIA [None]
  - POLLAKIURIA [None]
  - CONSTIPATION [None]
